FAERS Safety Report 7635833-1 (Version None)
Quarter: 2011Q3

REPORT INFORMATION
  Report Type: 
  Country: None (occurrence: None)
  Receive Date: 20110719
  Receipt Date: 20110712
  Transmission Date: 20111222
  Serious: Yes (Death, Other)
  Sender: FDA-Public Use
  Company Number: 2010SP044546

PATIENT
  Age: 25 Year
  Sex: Female
  Weight: 63.5036 kg

DRUGS (2)
  1. ZOLOFT [Suspect]
     Indication: PANIC ATTACK
  2. NUVARING [Suspect]
     Indication: CONTRACEPTION
     Dates: start: 20091211, end: 20100101

REACTIONS (15)
  - THROMBOSIS [None]
  - ACUTE RESPIRATORY FAILURE [None]
  - SUBARACHNOID HAEMORRHAGE [None]
  - SYNCOPE [None]
  - MIGRAINE [None]
  - SUBDURAL HAEMORRHAGE [None]
  - HYPERCOAGULATION [None]
  - TOBACCO ABUSE [None]
  - CEREBRAL VENOUS THROMBOSIS [None]
  - CEREBROVASCULAR ACCIDENT [None]
  - PULMONARY EMBOLISM [None]
  - MUSCLE SPASMS [None]
  - PANIC ATTACK [None]
  - TREMOR [None]
  - DRUG INTOLERANCE [None]
